FAERS Safety Report 26211679 (Version 1)
Quarter: 2025Q4

REPORT INFORMATION
  Report Type: Report from Study
  Country: US (occurrence: US)
  Receive Date: 20251230
  Receipt Date: 20251230
  Transmission Date: 20260117
  Serious: No
  Sender: DECIPHERA PHARMACEUTICALS
  Company Number: US-DECIPHERA PHARMACEUTICALS LLC-2025US001523

PATIENT
  Age: 68 Year
  Sex: Female

DRUGS (2)
  1. QINLOCK [Suspect]
     Active Substance: RIPRETINIB
     Indication: Malignant connective tissue neoplasm
     Dosage: 100 MILLIGRAM, QD
     Route: 061
     Dates: start: 20230915
  2. QINLOCK [Suspect]
     Active Substance: RIPRETINIB
     Indication: Soft tissue neoplasm

REACTIONS (1)
  - Product use issue [Unknown]

NARRATIVE: CASE EVENT DATE: 20251128
